FAERS Safety Report 11828055 (Version 1)
Quarter: 2015Q4

REPORT INFORMATION
  Report Type: Spontaneous
  Country: US (occurrence: US)
  Receive Date: 20151211
  Receipt Date: 20151211
  Transmission Date: 20160305
  Serious: Yes (Other)
  Sender: FDA-Public Use
  Company Number: US-ELI_LILLY_AND_COMPANY-US201512000716

PATIENT
  Sex: Female

DRUGS (2)
  1. CYMBALTA [Suspect]
     Active Substance: DULOXETINE HYDROCHLORIDE
     Indication: DEPRESSION
  2. CYMBALTA [Suspect]
     Active Substance: DULOXETINE HYDROCHLORIDE
     Indication: PAIN
     Dosage: UNK, UNKNOWN
     Route: 065

REACTIONS (24)
  - Memory impairment [Unknown]
  - Irritability [Unknown]
  - Nausea [Unknown]
  - Nightmare [Unknown]
  - Depression [Unknown]
  - Intentional self-injury [Unknown]
  - Disturbance in attention [Unknown]
  - Fatigue [Unknown]
  - Suicidal ideation [Unknown]
  - Vertigo [Unknown]
  - Confusional state [Unknown]
  - Agitation [Unknown]
  - Migraine [Unknown]
  - Vomiting [Unknown]
  - Dizziness [Unknown]
  - Headache [Unknown]
  - Paraesthesia [Unknown]
  - Sleep disorder [Unknown]
  - Suicide attempt [Unknown]
  - Drug withdrawal syndrome [Unknown]
  - Influenza like illness [Unknown]
  - Diarrhoea [Unknown]
  - Crying [Unknown]
  - Aggression [Unknown]
